FAERS Safety Report 11324689 (Version 2)
Quarter: 2015Q3

REPORT INFORMATION
  Report Type: Spontaneous
  Country: US (occurrence: US)
  Receive Date: 20150730
  Receipt Date: 20150814
  Transmission Date: 20151125
  Serious: No
  Sender: FDA-Public Use
  Company Number: US-PFIZER INC-2015253348

PATIENT
  Age: 56 Year
  Sex: Male
  Weight: 67 kg

DRUGS (1)
  1. CAVERJECT [Suspect]
     Active Substance: ALPROSTADIL
     Indication: SEXUAL DYSFUNCTION
     Dosage: ^20 MG^, 1X/DAY (AT NIGHT)

REACTIONS (3)
  - Penile burning sensation [Recovered/Resolved]
  - Injection site pain [Unknown]
  - Drug ineffective [Unknown]
